FAERS Safety Report 21355116 (Version 1)
Quarter: 2022Q3

REPORT INFORMATION
  Report Type: Spontaneous
  Country: US (occurrence: None)
  Receive Date: 20220920
  Receipt Date: 20220920
  Transmission Date: 20221027
  Serious: Yes (Life-Threatening, Hospitalization, Disabling, Other)
  Sender: FDA-Public Use
  Company Number: None

PATIENT
  Age: 55 Year
  Sex: Male
  Weight: 67.5 kg

DRUGS (4)
  1. ROPINIROLE HYDROCHLORIDE [Suspect]
     Active Substance: ROPINIROLE HYDROCHLORIDE
     Indication: Restless legs syndrome
     Dosage: OTHER QUANTITY : 01 TABLET(S);?FREQUENCY : DAILY;?
     Route: 048
  2. ropenoral [Concomitant]
  3. GABAPENTIN [Concomitant]
     Active Substance: GABAPENTIN
  4. cycobensrol [Concomitant]

REACTIONS (3)
  - Loss of consciousness [None]
  - Face injury [None]
  - Paralysis [None]

NARRATIVE: CASE EVENT DATE: 20210211
